FAERS Safety Report 5018446-X (Version None)
Quarter: 2006Q2

REPORT INFORMATION
  Report Type: 
  Country: None (occurrence: None)
  Receive Date: 20060530
  Receipt Date: 20050610
  Transmission Date: 20061013
  Serious: Yes (Hospitalization)
  Sender: FDA-Public Use
  Company Number: 2005086605

PATIENT
  Age: 74 Year
  Sex: Male
  Weight: 85 kg

DRUGS (4)
  1. LYRICA [Suspect]
     Indication: PAIN
     Dosage: 150 MG , ORAL
     Route: 048
     Dates: start: 20050426, end: 20050428
  2. DURAGESIC-100 [Suspect]
     Indication: PAIN
     Dosage: 100 MG (100 MG, 1 IN 1 D), TOPICAL
     Route: 061
     Dates: start: 20050424
  3. MADOPAR (BENSERAZIDE HYDROCHLORIDE, LEVODOPA) [Concomitant]
  4. SEROQUEL [Concomitant]

REACTIONS (1)
  - PSYCHOTIC DISORDER [None]
